FAERS Safety Report 15174818 (Version 1)
Quarter: 2018Q3

REPORT INFORMATION
  Report Type: Spontaneous
  Country: None (occurrence: GB)
  Receive Date: 20180720
  Receipt Date: 20180720
  Transmission Date: 20181010
  Serious: Yes (Other)
  Sender: FDA-Public Use
  Company Number: GB-LABORATOIRE HRA PHARMA-2052494

PATIENT
  Age: 35 Year
  Sex: Female
  Weight: 48 kg

DRUGS (1)
  1. ELLA [Suspect]
     Active Substance: ULIPRISTAL ACETATE
     Indication: POST COITAL CONTRACEPTION
     Route: 048
     Dates: start: 20180403, end: 20180403

REACTIONS (4)
  - Unintended pregnancy [None]
  - Exposure during pregnancy [None]
  - Drug ineffective [None]
  - Abortion spontaneous [Unknown]

NARRATIVE: CASE EVENT DATE: 20180514
